FAERS Safety Report 10666456 (Version 1)
Quarter: 2014Q4

REPORT INFORMATION
  Report Type: Spontaneous
  Country: US (occurrence: US)
  Receive Date: 20141221
  Receipt Date: 20141221
  Transmission Date: 20150529
  Serious: Yes (Hospitalization)
  Sender: FDA-Public Use
  Company Number: US-GLAXOSMITHKLINE-US2014037790

PATIENT
  Age: 61 Year
  Sex: Female

DRUGS (5)
  1. ALBUTEROL + IPRATROPIUM [Concomitant]
  2. NEBULIZER (NAME UNKNOWN) [Concomitant]
  3. ADVAIR DISKUS [Suspect]
     Active Substance: FLUTICASONE PROPIONATE\SALMETEROL XINAFOATE
     Indication: CHRONIC OBSTRUCTIVE PULMONARY DISEASE
     Dosage: 1 PUFF(S), BID
     Route: 055
     Dates: start: 2013, end: 2013
  4. MUCINEX [Concomitant]
     Active Substance: GUAIFENESIN
  5. NASOCORT [Concomitant]
     Active Substance: TRIAMCINOLONE ACETONIDE

REACTIONS (1)
  - Dyspnoea [Recovering/Resolving]

NARRATIVE: CASE EVENT DATE: 201310
